FAERS Safety Report 25254588 (Version 3)
Quarter: 2025Q4

REPORT INFORMATION
  Report Type: Report from Study
  Country: EU (occurrence: EU)
  Receive Date: 20250430
  Receipt Date: 20251117
  Transmission Date: 20260118
  Serious: Yes (Hospitalization)
  Sender: TAKEDA
  Company Number: EU-TAKEDA-2025TUS040944

PATIENT
  Age: 8 Year
  Sex: Male

DRUGS (13)
  1. TEDUGLUTIDE [Suspect]
     Active Substance: TEDUGLUTIDE
     Indication: Short-bowel syndrome
     Dosage: 1 MILLIGRAM, QD
     Dates: start: 20220715
  2. TEDUGLUTIDE [Suspect]
     Active Substance: TEDUGLUTIDE
  3. TEDUGLUTIDE [Suspect]
     Active Substance: TEDUGLUTIDE
  4. TEDUGLUTIDE [Suspect]
     Active Substance: TEDUGLUTIDE
  5. FLUTICASONE PROPIONATE [Concomitant]
     Active Substance: FLUTICASONE PROPIONATE
     Indication: Antiinflammatory therapy
     Dosage: UNK UNK, BID
     Dates: start: 20180606
  6. ESOMEPRAZOLE [Concomitant]
     Active Substance: ESOMEPRAZOLE
     Indication: Gastric pH increased
     Dosage: 20 MILLIGRAM, QD
     Dates: start: 20210930
  7. TAUROLIDINE [Concomitant]
     Active Substance: TAUROLIDINE
     Indication: Prophylaxis
     Dosage: 0.3 MILLILITER, QD
     Dates: start: 20220728
  8. ESOMEPRAZOLE [Concomitant]
     Active Substance: ESOMEPRAZOLE
     Indication: Prophylaxis
     Dosage: 10 MILLIGRAM, BID
     Dates: start: 20220908
  9. AMLODIPINE [Concomitant]
     Active Substance: AMLODIPINE BESYLATE
     Indication: Hypertension
     Dosage: 5 MILLIGRAM, BID
     Dates: start: 20221107
  10. NUBAIN [Concomitant]
     Active Substance: NALBUPHINE HYDROCHLORIDE
     Indication: Abdominal pain
     Dosage: 5 MILLIGRAM
  11. POLYETHYLENE GLYCOLS [Concomitant]
     Active Substance: POLYETHYLENE GLYCOLS
     Indication: Abdominal pain
     Dosage: 4 GRAM
  12. CALCIUM PHOSPHATE, DIBASIC, ANHYDROUS\MAGNESIUM GLYCEROPHOSPHATE\PHOSP [Concomitant]
     Active Substance: CALCIUM PHOSPHATE, DIBASIC, ANHYDROUS\MAGNESIUM GLYCEROPHOSPHATE\PHOSPHORIC ACID\SODIUM PHOSPHATE, D
     Indication: Nutritional supplementation
     Dosage: 183 MILLIGRAM, QD
     Dates: start: 20240528
  13. EBASTINE [Concomitant]
     Active Substance: EBASTINE
     Indication: Antiallergic therapy
     Dosage: 0.5 MILLIGRAM, QD
     Dates: start: 20240528

REACTIONS (2)
  - Complication associated with device [Recovered/Resolved]
  - Tonsillitis [Recovered/Resolved]

NARRATIVE: CASE EVENT DATE: 20240527
